FAERS Safety Report 23545236 (Version 1)
Quarter: 2024Q1

REPORT INFORMATION
  Report Type: Spontaneous
  Country: DE (occurrence: DE)
  Receive Date: 20240220
  Receipt Date: 20240220
  Transmission Date: 20240410
  Serious: Yes (Other)
  Sender: FDA-Public Use
  Company Number: DE-002147023-NVSC2023DE271900

PATIENT
  Sex: Female
  Weight: 90 kg

DRUGS (14)
  1. CARBAMAZEPINE [Suspect]
     Active Substance: CARBAMAZEPINE
     Indication: Product used for unknown indication
     Dosage: UNK
     Route: 065
  2. LEVETIRACETAM [Suspect]
     Active Substance: LEVETIRACETAM
     Indication: Epilepsy
     Dosage: 1-0-2
     Route: 048
  3. MAYZENT [Suspect]
     Active Substance: SIPONIMOD
     Indication: Multiple sclerosis
     Dosage: 1-1-0
     Route: 065
     Dates: start: 2023, end: 20231110
  4. MAYZENT [Suspect]
     Active Substance: SIPONIMOD
     Dosage: 1-0-0 (THERAPY STOP DATE: 2023)
     Route: 048
     Dates: start: 20231019
  5. MAYZENT [Suspect]
     Active Substance: SIPONIMOD
     Dosage: 0.25 MILLIGRAM, QD (0.25, 1X DAILY)
     Route: 065
  6. MAYZENT [Suspect]
     Active Substance: SIPONIMOD
     Dosage: 1.25 MILLIGRAM, QD (1.25 MG, 1X DAILY)
     Route: 065
  7. MAYZENT [Suspect]
     Active Substance: SIPONIMOD
     Dosage: 0.5 MILLIGRAM, QD (0.5 MG, 1X DAILY)
     Route: 065
  8. MAYZENT [Suspect]
     Active Substance: SIPONIMOD
     Dosage: 2 MILLIGRAM, QD (2 MG, 1X DAILY)
     Route: 065
  9. MAYZENT [Suspect]
     Active Substance: SIPONIMOD
     Dosage: 0.25 MILLIGRAM, QD (0.25, 1X DAILY)
     Route: 065
  10. MAYZENT [Suspect]
     Active Substance: SIPONIMOD
     Dosage: 0.75 MILLIGRAM, QD (0.75 MG, 1X DAILY)
     Route: 065
  11. BACLOFEN [Concomitant]
     Active Substance: BACLOFEN
     Indication: Product used for unknown indication
     Dosage: 1-1-1-1
     Route: 048
  12. TOLPERISONE [Concomitant]
     Active Substance: TOLPERISONE
     Indication: Product used for unknown indication
     Dosage: 1-0-1
     Route: 048
  13. MODAFINIL [Concomitant]
     Active Substance: MODAFINIL
     Indication: Product used for unknown indication
     Dosage: 1-0-0
     Route: 065
  14. GABAPENTIN [Concomitant]
     Active Substance: GABAPENTIN
     Indication: Product used for unknown indication
     Dosage: UNK, QD, 3 DAILY
     Route: 048

REACTIONS (3)
  - Lymphopenia [Recovered/Resolved]
  - Leukopenia [Recovered/Resolved]
  - Laboratory test abnormal [Unknown]

NARRATIVE: CASE EVENT DATE: 20231108
